FAERS Safety Report 7595378-4 (Version None)
Quarter: 2011Q2

REPORT INFORMATION
  Report Type: 
  Country: None (occurrence: None)
  Receive Date: 20110620
  Receipt Date: 20110516
  Transmission Date: 20111010
  Serious: Yes (Hospitalization)
  Sender: FDA-Public Use
  Company Number: UTC-007170

PATIENT
  Age: 60 Year
  Sex: Female
  Weight: 74.5 kg

DRUGS (2)
  1. COUMADIN [Concomitant]
  2. TYVASO [Suspect]
     Indication: PULMONARY ARTERIAL HYPERTENSION
     Dosage: 54 MCG, INHALATION
     Route: 055
     Dates: start: 20110217

REACTIONS (3)
  - COUGH [None]
  - DYSPNOEA [None]
  - CHEST PAIN [None]
